FAERS Safety Report 9983461 (Version 1)
Quarter: 2014Q1

REPORT INFORMATION
  Report Type: Spontaneous
  Country: KR (occurrence: KR)
  Receive Date: 20140307
  Receipt Date: 20140307
  Transmission Date: 20141002
  Serious: Yes (Death, Hospitalization)
  Sender: FDA-Public Use
  Company Number: KR-B.I. PHARMACEUTICALS,INC./RIDGEFIELD-2014-BI-09573RK

PATIENT
  Age: 76 Year
  Sex: Female

DRUGS (6)
  1. PRADAXA [Suspect]
     Indication: CEREBROVASCULAR ACCIDENT PROPHYLAXIS
     Dosage: 220 MG
     Route: 048
     Dates: start: 20130923, end: 20140205
  2. KANARB TAB / FIMASARTAN 120MG [Concomitant]
     Indication: HYPERTENSION
     Dosage: 120 MG
     Route: 048
  3. ASPIRIN PROTECT / ASPIRIN 100MG [Concomitant]
     Indication: ATRIAL FIBRILLATION
     Dosage: 100 MG
     Route: 048
  4. PLATLESS TAB / CLOPIDOGREL 75MG [Concomitant]
     Indication: ATRIAL FIBRILLATION
     Dosage: 75 MG
     Route: 048
  5. MOSARONE TAB / MOSAPRIDE 5MG [Concomitant]
     Dosage: 10 MG
     Route: 048
  6. STILLEN TAB / ARTEMISIA ASIATICA 95% ETHANOL EXT. [Concomitant]
     Dosage: 120 MG
     Route: 048

REACTIONS (2)
  - Death [Fatal]
  - Mental status changes [Fatal]
